FAERS Safety Report 9028685 (Version 1)
Quarter: 2013Q1

REPORT INFORMATION
  Report Type: Spontaneous
  Country: GB (occurrence: GB)
  Receive Date: 20130124
  Receipt Date: 20130124
  Transmission Date: 20140127
  Serious: Yes (Other)
  Sender: FDA-Public Use
  Company Number: PHFR2012GB006188

PATIENT
  Age: 52 Year
  Sex: Male
  Weight: 99.1 kg

DRUGS (4)
  1. CLOZARIL [Suspect]
     Indication: SCHIZOPHRENIA, PARANOID TYPE
     Dosage: 400 MG, DAILY DOSE
     Route: 048
     Dates: start: 20040209
  2. ARIPIPRAZOLE [Concomitant]
     Indication: SCHIZOPHRENIA
     Dosage: 10 MG, UNK
     Route: 048
  3. TIOTROPIUM BROMIDE [Concomitant]
     Indication: ASTHMA
     Dosage: 10 UG, UNK
  4. SERETIDE [Concomitant]
     Indication: ASTHMA
     Dosage: UNK UKN, BID

REACTIONS (2)
  - Asthma [Not Recovered/Not Resolved]
  - Platelet count decreased [Recovered/Resolved]
